FAERS Safety Report 13564712 (Version 1)
Quarter: 2017Q2

REPORT INFORMATION
  Report Type: Report from Study
  Country: CN (occurrence: CN)
  Receive Date: 20170519
  Receipt Date: 20170519
  Transmission Date: 20170830
  Serious: Yes (Hospitalization)
  Sender: FDA-Public Use
  Company Number: PHHY2017CN072686

PATIENT
  Age: 66 Year
  Sex: Female
  Weight: 50.5 kg

DRUGS (4)
  1. DIOVAN [Suspect]
     Active Substance: VALSARTAN
     Indication: HYPERTENSION
     Route: 048
     Dates: start: 201610
  2. PLAVIX [Concomitant]
     Active Substance: CLOPIDOGREL BISULFATE
     Indication: PRODUCT USED FOR UNKNOWN INDICATION
     Dosage: 75 MG, QD
     Route: 048
  3. ASPIRIN. [Concomitant]
     Active Substance: ASPIRIN
     Indication: PRODUCT USED FOR UNKNOWN INDICATION
     Dosage: 100 MG, QD
     Route: 048
  4. ATORVASTATIN [Concomitant]
     Active Substance: ATORVASTATIN
     Indication: PRODUCT USED FOR UNKNOWN INDICATION
     Dosage: 10 MG, QN
     Route: 048

REACTIONS (14)
  - High density lipoprotein increased [Unknown]
  - Low density lipoprotein decreased [Unknown]
  - Alanine aminotransferase increased [Unknown]
  - Blood pressure decreased [Unknown]
  - Muscular weakness [Unknown]
  - Dizziness [Unknown]
  - Blood cholesterol decreased [Unknown]
  - Arteriosclerosis coronary artery [Unknown]
  - Blood pressure increased [Unknown]
  - Blood lactic acid increased [Unknown]
  - Aspartate aminotransferase increased [Unknown]
  - Angina pectoris [Unknown]
  - Insomnia [Unknown]
  - Blood albumin increased [Unknown]

NARRATIVE: CASE EVENT DATE: 20161228
